FAERS Safety Report 7297885-0 (Version None)
Quarter: 2011Q1

REPORT INFORMATION
  Report Type: 
  Country: None (occurrence: None)
  Receive Date: 20110217
  Receipt Date: 20110210
  Transmission Date: 20110831
  Serious: Yes (Other)
  Sender: FDA-Public Use
  Company Number: KR-JNJFOC-20110203720

PATIENT
  Age: 52 Year
  Sex: Female

DRUGS (1)
  1. DURAGESIC-100 [Suspect]
     Indication: PAIN IN EXTREMITY
     Dosage: TWO 12.5UG/HR PATCHES APPLIED
     Route: 062

REACTIONS (5)
  - VOMITING [None]
  - DIZZINESS [None]
  - OVERDOSE [None]
  - BLINDNESS [None]
  - DRUG PRESCRIBING ERROR [None]
